FAERS Safety Report 4511745-7 (Version None)
Quarter: 2004Q4

REPORT INFORMATION
  Report Type: 
  Country: None (occurrence: None)
  Receive Date: 20041123
  Receipt Date: 20041123
  Transmission Date: 20050328
  Serious: Yes (Other)
  Sender: FDA-Public Use
  Company Number: None

PATIENT
  Age: 57 Year
  Sex: Male
  Weight: 117.5 kg

DRUGS (31)
  1. TRAMADOL HCL [Suspect]
  2. SPIRONOLACTONE [Concomitant]
  3. INSULIN NOVOLIN 70/30 (NPH/REG) INJ NOVO [Concomitant]
  4. ALCOHOL PREP PAD [Concomitant]
  5. RABEPRAZOLE  NA [Concomitant]
  6. CYCLOBENZAPRINE HCL [Concomitant]
  7. LANCET, TECHLITE [Concomitant]
  8. ASPIRIN [Concomitant]
  9. FUROSEMIDE [Concomitant]
  10. NITROGLYCERIN [Concomitant]
  11. INSULIN SYRINGE [Concomitant]
  12. HYDROCORTISONE [Concomitant]
  13. CLOTRIMAZOLE [Concomitant]
  14. SIMVASTATIN [Concomitant]
  15. ALOH/MGOH/SIMTH XTRA STRENGTH SUSP [Concomitant]
  16. ACETAMINOPHEN [Concomitant]
  17. ARTIFICIAL TEARS POLYVINYL ALCOHOL [Concomitant]
  18. PSYLLIUM SF [Concomitant]
  19. TERBUTALINE SULFATE [Concomitant]
  20. ACCU-CHEK COMFORT CURVE-H TEST STRIP [Concomitant]
  21. FLUNISOLIDE [Concomitant]
  22. MULTI-VITAMIN [Concomitant]
  23. ALBUTEROL [Concomitant]
  24. IPATROPIUM BROMIDE [Concomitant]
  25. METFORMIN HCL [Concomitant]
  26. GUAIFENESIN [Concomitant]
  27. VERAPAMIL HCL [Concomitant]
  28. PENTOXIFYLLINE [Concomitant]
  29. FOSINOPRIL SODIUM [Concomitant]
  30. METOPROLOL TARTRATE [Concomitant]
  31. DOCUSATE NA [Concomitant]

REACTIONS (1)
  - VOMITING [None]
